FAERS Safety Report 7361150-3 (Version None)
Quarter: 2011Q1

REPORT INFORMATION
  Report Type: 
  Country: None (occurrence: None)
  Receive Date: 20110318
  Receipt Date: 20110306
  Transmission Date: 20110831
  Serious: Yes (Other)
  Sender: FDA-Public Use
  Company Number: IL-ELI_LILLY_AND_COMPANY-IL201103002530

PATIENT
  Age: 75 Year
  Sex: Male

DRUGS (6)
  1. CIALIS [Suspect]
     Dosage: 20 MG, UNK
  2. NORVASC [Concomitant]
     Indication: BLOOD PRESSURE
     Dosage: 5 MG, DAILY (1/D)
  3. SIMVASTATIN [Concomitant]
     Dosage: 20 MG, QOD
  4. CARTIA /ISR/ [Concomitant]
     Indication: CARDIAC DISORDER
     Dosage: 100 MG, DAILY (1/D)
  5. SIMVASTATIN [Concomitant]
     Dosage: 20 MG, DAILY (1/D)
  6. GASTRO [Concomitant]
     Dosage: 20 MG, DAILY (1/D)

REACTIONS (2)
  - DRUG INEFFECTIVE [None]
  - HEART RATE DECREASED [None]
